FAERS Safety Report 11763103 (Version 1)
Quarter: 2015Q4

REPORT INFORMATION
  Report Type: Spontaneous
  Country: US (occurrence: US)
  Receive Date: 20151120
  Receipt Date: 20151120
  Transmission Date: 20160304
  Serious: No
  Sender: FDA-Public Use
  Company Number: US-ELI_LILLY_AND_COMPANY-US201302009692

PATIENT
  Age: 75 Year
  Sex: Female

DRUGS (4)
  1. FORTEO [Suspect]
     Active Substance: TERIPARATIDE
     Indication: OSTEOPOROSIS
     Dosage: 20 UG, QD
     Dates: start: 201206
  2. TUMS [Concomitant]
     Active Substance: CALCIUM CARBONATE
  3. OMEPRAZOL [Concomitant]
     Active Substance: OMEPRAZOLE
  4. FORTEO [Suspect]
     Active Substance: TERIPARATIDE
     Dosage: 20 UG, QD
     Dates: end: 20130220

REACTIONS (14)
  - Fear [Unknown]
  - Discomfort [Unknown]
  - Ear infection [Unknown]
  - Muscular weakness [Unknown]
  - Sleep disorder due to a general medical condition [Unknown]
  - Constipation [Unknown]
  - Chest pain [Unknown]
  - Pollakiuria [Unknown]
  - Abdominal pain upper [Unknown]
  - Arthralgia [Unknown]
  - Muscle spasms [Unknown]
  - Intentional product misuse [Unknown]
  - Cardiac discomfort [Unknown]
  - Blood calcium increased [Unknown]

NARRATIVE: CASE EVENT DATE: 201210
